FAERS Safety Report 17691629 (Version 2)
Quarter: 2020Q2

REPORT INFORMATION
  Report Type: Spontaneous
  Country: CA (occurrence: CA)
  Receive Date: 20200422
  Receipt Date: 20200424
  Transmission Date: 20200714
  Serious: Yes (Hospitalization, Other)
  Sender: FDA-Public Use
  Company Number: CA-ASTRAZENECA-2020SE52151

PATIENT
  Age: 70 Year
  Sex: Female

DRUGS (4)
  1. IRESSA [Concomitant]
     Active Substance: GEFITINIB
     Indication: LUNG NEOPLASM MALIGNANT
     Route: 048
  2. ELIQUIS [Concomitant]
     Active Substance: APIXABAN
  3. TAGRISSO [Suspect]
     Active Substance: OSIMERTINIB
     Indication: LUNG NEOPLASM MALIGNANT
     Dosage: 80.0MG UNKNOWN
     Route: 048
     Dates: start: 202001
  4. LASIX [Concomitant]
     Active Substance: FUROSEMIDE

REACTIONS (6)
  - Fatigue [Unknown]
  - Cardiac disorder [Unknown]
  - Central nervous system lesion [Unknown]
  - Stomatitis [Unknown]
  - Heart rate increased [Recovering/Resolving]
  - Cardiac arrest [Unknown]
